FAERS Safety Report 19835892 (Version 1)
Quarter: 2021Q3

REPORT INFORMATION
  Report Type: Spontaneous
  Country: DE (occurrence: DE)
  Receive Date: 20210915
  Receipt Date: 20210915
  Transmission Date: 20211014
  Serious: Yes (Hospitalization)
  Sender: FDA-Public Use
  Company Number: DE-PFIZER INC-202101142960

PATIENT
  Age: 84 Year
  Sex: Male

DRUGS (14)
  1. XIPAMID [Suspect]
     Active Substance: XIPAMIDE
     Dosage: 10 MG, 1X/DAY (1?0?0?0)
     Route: 048
  2. ALDACTONE [Suspect]
     Active Substance: SPIRONOLACTONE
     Dosage: 25 MG, 1X/DAY ( 0?1?0?0)
     Route: 048
  3. TORASEMID [Suspect]
     Active Substance: TORSEMIDE
     Dosage: 10 MG, 1X/DAY (1?0?0?0)
     Route: 048
  4. MADOPAR DEPOT [Concomitant]
     Active Substance: BENSERAZIDE HYDROCHLORIDE\LEVODOPA
     Dosage: UNK, 1X/DAY (1?0?0?0)
     Route: 048
  5. MOMETASON [Concomitant]
     Active Substance: MOMETASONE FUROATE
     Dosage: 0.05 UG, 2X/DAY (1?0?1?0 )
  6. TIOTROPIUM BROMIDE [Concomitant]
     Active Substance: TIOTROPIUM BROMIDE
     Dosage: 2.5 UG, 1X/DAY (2?0?0?0)
     Route: 055
  7. KALINOR?RETARD [Concomitant]
     Dosage: UNK, 2X/DAY (1?1?0?0)
     Route: 048
  8. SALBUTAMOL [Concomitant]
     Active Substance: ALBUTEROL
     Dosage: IF NECESSARY, METERED DOSE INHALER
     Route: 055
  9. STALEVO [Concomitant]
     Active Substance: CARBIDOPA\ENTACAPONE\LEVODOPA
     Dosage: 150 MG, 1X/DAY (1?0?0?0)
     Route: 048
  10. STALEVO [Concomitant]
     Active Substance: CARBIDOPA\ENTACAPONE\LEVODOPA
     Dosage: 150 MG, 1X/DAY (0?0?1?0)
     Route: 048
  11. FLUTICASON [Concomitant]
     Active Substance: FLUTICASONE
     Dosage: UNK, 2X/DAY (1?0?1?0)
  12. RIVAROXABAN [Suspect]
     Active Substance: RIVAROXABAN
     Dosage: 20 MG, 1X/DAY (1?0?0?0)
     Route: 048
  13. STALEVO [Concomitant]
     Active Substance: CARBIDOPA\ENTACAPONE\LEVODOPA
     Dosage: 175 MG, 1X/DAY (0?1?0?0)
     Route: 048
  14. FLUTICASONE/VILANTEROL [Concomitant]
     Active Substance: FLUTICASONE FUROATE\VILANTEROL TRIFENATATE
     Dosage: 100/25 ?G, (1?0?0?0) 1X/DAY
     Route: 055

REACTIONS (4)
  - Hypotonia [Unknown]
  - Fatigue [Unknown]
  - General physical health deterioration [Unknown]
  - Hypotension [Unknown]
